FAERS Safety Report 16607144 (Version 10)
Quarter: 2019Q4

REPORT INFORMATION
  Report Type: Report from Study
  Country: None (occurrence: CH)
  Receive Date: 20190722
  Receipt Date: 20191212
  Transmission Date: 20200122
  Serious: Yes (Death, Life-Threatening, Hospitalization, Other)
  Sender: FDA-Public Use
  Company Number: CH-ABBVIE-19K-151-2860492-00

PATIENT
  Age: 86 Year
  Sex: Male

DRUGS (16)
  1. SUFENTA [Concomitant]
     Active Substance: SUFENTANIL CITRATE
     Indication: PARKINSON^S DISEASE
  2. RIVOTRIL [Concomitant]
     Active Substance: CLONAZEPAM
     Indication: PARKINSON^S DISEASE
  3. DUODOPA [Suspect]
     Active Substance: CARBIDOPA\LEVODOPA
     Dosage: 1 CASSETTE/DAY
     Route: 050
     Dates: start: 2019
  4. DORMICUM [Concomitant]
     Indication: PRODUCT USED FOR UNKNOWN INDICATION
     Route: 042
  5. DUODOPA [Suspect]
     Active Substance: CARBIDOPA\LEVODOPA
     Dosage: MD: 7 ML; CR: 3 ML/H, 16 H THERAPY
     Route: 050
     Dates: end: 20190719
  6. DUODOPA [Suspect]
     Active Substance: CARBIDOPA\LEVODOPA
     Dosage: MD: 7 ML; CR: 3 ML/H, 16 H THERAPY
     Route: 050
     Dates: start: 20190719, end: 2019
  7. PK MERZ [Concomitant]
     Active Substance: AMANTADINE SULFATE
     Indication: PRODUCT USED FOR UNKNOWN INDICATION
  8. DISOPRIVAN [Concomitant]
     Active Substance: PROPOFOL
     Indication: PARKINSON^S DISEASE
  9. DUODOPA [Suspect]
     Active Substance: CARBIDOPA\LEVODOPA
     Dosage: MD: 7 ML; CR: 3 ML/H, 16 H THERAPY
     Route: 050
     Dates: start: 201909, end: 20190917
  10. MADOPAR [Concomitant]
     Active Substance: BENSERAZIDE HYDROCHLORIDE\LEVODOPA
     Indication: PARKINSON^S DISEASE
  11. NEUPRO [Concomitant]
     Active Substance: ROTIGOTINE
     Indication: PARKINSON^S DISEASE
     Route: 062
  12. DUODOPA [Suspect]
     Active Substance: CARBIDOPA\LEVODOPA
     Indication: PARKINSON^S DISEASE
     Dosage: 1 CASSETTE/DAY?STRENGTH (CMP): 20 MG/ML 5 MG/ML
     Route: 050
     Dates: start: 20120521, end: 20170510
  13. DUODOPA [Suspect]
     Active Substance: CARBIDOPA\LEVODOPA
     Dosage: MD: 7 ML; CR: 3 ML/H, 16 H THERAPY
     Route: 050
     Dates: start: 20170510
  14. DUODOPA [Suspect]
     Active Substance: CARBIDOPA\LEVODOPA
     Dosage: MD: 7 ML; CR: 3 ML/H, 16 H THERAPY
     Route: 050
     Dates: start: 20190904, end: 201909
  15. DUODOPA [Suspect]
     Active Substance: CARBIDOPA\LEVODOPA
     Dosage: MD: 7 ML; CR: 4.6ML/H, 16 H THERAPY
     Route: 050
     Dates: start: 20190917, end: 2019
  16. PK MERZ [Concomitant]
     Active Substance: AMANTADINE SULFATE
     Indication: PRODUCT USED FOR UNKNOWN INDICATION
     Route: 051

REACTIONS (50)
  - Bacterial disease carrier [Unknown]
  - Metabolic acidosis [Unknown]
  - Febrile infection-related epilepsy syndrome [Recovered/Resolved]
  - Cerebral atrophy [Unknown]
  - Intentional medical device removal by patient [Recovered/Resolved]
  - Therapeutic product effect decreased [Not Recovered/Not Resolved]
  - Neurone-specific enolase increased [Unknown]
  - Candida sepsis [Unknown]
  - Bladder cancer [Unknown]
  - Urinary tract infection bacterial [Unknown]
  - Electroencephalogram abnormal [Unknown]
  - Off label use [Not Recovered/Not Resolved]
  - Muscle spasticity [Recovered/Resolved]
  - Speech disorder [Unknown]
  - Dyskinesia [Unknown]
  - Renal failure [Unknown]
  - Hyperammonaemia [Unknown]
  - Hypernatraemia [Recovered/Resolved]
  - Chills [Recovered/Resolved]
  - Toxic encephalopathy [Fatal]
  - Tonic clonic movements [Unknown]
  - Fungal infection [Not Recovered/Not Resolved]
  - Unresponsive to stimuli [Not Recovered/Not Resolved]
  - Bone neoplasm [Unknown]
  - Myoclonus [Recovered/Resolved]
  - Hyperthermia [Unknown]
  - Bacterial sepsis [Unknown]
  - Heart valve replacement [Not Recovered/Not Resolved]
  - Metastases to liver [Unknown]
  - Device deployment issue [Unknown]
  - Disturbance in attention [Unknown]
  - Somnolence [Unknown]
  - Parkinsonism [Unknown]
  - Hypertensive crisis [Unknown]
  - Cardiac pacemaker insertion [Not Recovered/Not Resolved]
  - Thrombocytopenia [Unknown]
  - Pneumonia aspiration [Unknown]
  - Azotaemia [Unknown]
  - Off label use [Recovered/Resolved]
  - On and off phenomenon [Unknown]
  - Generalised tonic-clonic seizure [Unknown]
  - Intensive care unit acquired weakness [Unknown]
  - Respiratory failure [Unknown]
  - Leukoencephalopathy [Unknown]
  - Arteriosclerosis [Unknown]
  - Akinesia [Unknown]
  - Urinary tract infection [Recovering/Resolving]
  - Systemic candida [Not Recovered/Not Resolved]
  - Off label use [Recovered/Resolved]
  - Muscle spasms [Unknown]

NARRATIVE: CASE EVENT DATE: 20190718
